FAERS Safety Report 16689598 (Version 1)
Quarter: 2019Q3

REPORT INFORMATION
  Report Type: Spontaneous
  Country: IT (occurrence: IT)
  Receive Date: 20190809
  Receipt Date: 20190809
  Transmission Date: 20191004
  Serious: Yes (Other)
  Sender: FDA-Public Use
  Company Number: IT-ASTRAZENECA-2019SF11515

PATIENT
  Age: 25 Year
  Sex: Female

DRUGS (1)
  1. QUETIAPINE. [Suspect]
     Active Substance: QUETIAPINE
     Indication: PRODUCT ADMINISTRATION ERROR
     Dosage: 50.0MG ONCE/SINGLE ADMINISTRATION
     Route: 048

REACTIONS (4)
  - Nausea [Recovering/Resolving]
  - Asthenia [Recovering/Resolving]
  - Drug abuse [Recovering/Resolving]
  - Vomiting [Recovering/Resolving]

NARRATIVE: CASE EVENT DATE: 20190611
